FAERS Safety Report 7305087-4 (Version None)
Quarter: 2011Q1

REPORT INFORMATION
  Report Type: 
  Country: None (occurrence: None)
  Receive Date: 20110222
  Receipt Date: 20110209
  Transmission Date: 20110831
  Serious: Yes (Death, Hospitalization, Disabling, Other)
  Sender: FDA-Public Use
  Company Number: US-CELGENEUS-163-21880-10100572

PATIENT
  Sex: Female

DRUGS (2)
  1. REVLIMID [Suspect]
     Indication: MYELODYSPLASTIC SYNDROME
     Route: 048
     Dates: start: 20100810, end: 20100831
  2. NEXIUM [Concomitant]
     Route: 065

REACTIONS (4)
  - DEATH [None]
  - FALL [None]
  - JOINT SPRAIN [None]
  - NEUROPATHY PERIPHERAL [None]
